FAERS Safety Report 14514592 (Version 1)
Quarter: 2018Q1

REPORT INFORMATION
  Report Type: Report from Study
  Country: US (occurrence: US)
  Receive Date: 20180209
  Receipt Date: 20180209
  Transmission Date: 20180509
  Serious: Yes (Hospitalization)
  Sender: FDA-Public Use
  Company Number: US-ACTELION-A-NJ2018-167221

PATIENT
  Age: 80 Year
  Sex: Female

DRUGS (11)
  1. LEXAPRO [Concomitant]
     Active Substance: ESCITALOPRAM OXALATE
  2. BREO ELLIPTA [Concomitant]
     Active Substance: FLUTICASONE FUROATE\VILANTEROL TRIFENATATE
  3. XARELTO [Concomitant]
     Active Substance: RIVAROXABAN
  4. TRACLEER [Suspect]
     Active Substance: BOSENTAN
     Indication: PULMONARY ARTERIAL HYPERTENSION
     Dosage: UNK
     Route: 048
  5. PRILOSEC [Concomitant]
     Active Substance: OMEPRAZOLE MAGNESIUM
  6. BONIVA [Concomitant]
     Active Substance: IBANDRONATE SODIUM
  7. FUROSEMIDE. [Concomitant]
     Active Substance: FUROSEMIDE
  8. SPIRONOLACTON [Concomitant]
     Active Substance: SPIRONOLACTONE
  9. ADCIRCA [Concomitant]
     Active Substance: TADALAFIL
  10. TRAMADOL. [Concomitant]
     Active Substance: TRAMADOL
  11. TYLENOL [Concomitant]
     Active Substance: ACETAMINOPHEN

REACTIONS (1)
  - Road traffic accident [Unknown]
